FAERS Safety Report 7714188 (Version 3)
Quarter: 2013Q2

REPORT INFORMATION
  Report Type: Report from Study
  Country: DE (occurrence: DE)
  Receive Date: 20101216
  Receipt Date: 20130416
  Transmission Date: 20140414
  Serious: Yes (Death, Hospitalization, Other)
  Sender: FDA-Public Use
  Company Number: DE-ROCHE-734223

PATIENT
  Age: 69 Year
  Sex: Female
  Weight: 80 kg

DRUGS (6)
  1. BEVACIZUMAB [Suspect]
     Indication: BRONCHIAL CARCINOMA
     Route: 042
  2. ALIMTA [Suspect]
     Indication: BRONCHIAL CARCINOMA
     Route: 042
  3. MARCUMAR [Suspect]
     Indication: PULMONARY EMBOLISM
     Route: 048
  4. CISPLATIN [Concomitant]
     Indication: BRONCHIAL CARCINOMA
     Route: 042
  5. GRANISETRON [Concomitant]
     Indication: BRONCHIAL CARCINOMA
     Route: 042
  6. EMEND [Concomitant]
     Indication: BRONCHIAL CARCINOMA
     Route: 048

REACTIONS (4)
  - Cerebral haemorrhage [Fatal]
  - Dizziness [Unknown]
  - Metastases to central nervous system [Unknown]
  - Pulmonary embolism [Recovered/Resolved]
